FAERS Safety Report 9882954 (Version 1)
Quarter: 2014Q1

REPORT INFORMATION
  Report Type: Spontaneous
  Country: US (occurrence: None)
  Receive Date: 20140205
  Receipt Date: 20140205
  Transmission Date: 20141002
  Serious: Yes (Other)
  Sender: FDA-Public Use
  Company Number: 2014US00074

PATIENT
  Sex: 0

DRUGS (3)
  1. GEMCITABINE [Suspect]
     Dosage: 1,000 MG/M**2 ON DAY 1 ON DAY 1 OF EACH OF THE 4 CYCLES OVER 2 WEEKS
  2. BEVACIZUMAB [Suspect]
     Dosage: 1O MG/KG ON DAY 1 ON DAY 1 OF EACH OF THE 4 CYRLCES OVER 2 WEEKS
  3. OXALIPLATIN [Suspect]
     Dosage: 85 MG,M2 ON DAY 2 OF EACH OF THE 4 CYRCLES OVER 2 WEEKS

REACTIONS (2)
  - Pain [None]
  - Toxicity to various agents [None]
